FAERS Safety Report 16884325 (Version 1)
Quarter: 2019Q4

REPORT INFORMATION
  Report Type: Spontaneous
  Country: BR (occurrence: BR)
  Receive Date: 20191004
  Receipt Date: 20191004
  Transmission Date: 20200122
  Serious: Yes (Hospitalization, Other)
  Sender: FDA-Public Use
  Company Number: BR-TORRENT-00005122

PATIENT
  Age: 25 Year
  Sex: Female

DRUGS (16)
  1. KETOPROFEN. [Suspect]
     Active Substance: KETOPROFEN
     Indication: BACK PAIN
     Dosage: INGESTED
     Route: 048
  2. ILEX PARAGUARIENSIS [Concomitant]
     Indication: WEIGHT DECREASED
     Dosage: UNKNOWN
     Route: 048
  3. GINGER. [Concomitant]
     Active Substance: GINGER
     Indication: WEIGHT DECREASED
     Dosage: KAEMPFERIA GALANGA
     Route: 048
  4. SAFFLOWER OIL [Concomitant]
     Active Substance: SAFFLOWER OIL
     Indication: WEIGHT DECREASED
     Dosage: UNKNOWN
     Route: 048
  5. BUPROPION. [Suspect]
     Active Substance: BUPROPION
     Indication: WEIGHT DECREASED
     Dosage: INGESTED
     Route: 048
  6. PHASEOLUS VULGARIS [Concomitant]
     Indication: WEIGHT DECREASED
     Dosage: UNKNOWN
     Route: 048
  7. GARCINIA CAMBOGIA [Suspect]
     Active Substance: HERBALS\GARCINIA CAMBOGIA FRUIT
     Indication: WEIGHT DECREASED
     Dosage: INGESTED
     Route: 048
  8. ARCTOSTAPHYLOS UVAURSI [Concomitant]
     Indication: WEIGHT DECREASED
     Dosage: UNKNOWN
     Route: 048
  9. DYED BROCCOLI EXTRACT [Concomitant]
     Indication: WEIGHT DECREASED
     Dosage: UNKNOWN
     Route: 048
  10. SERTRALINE [Suspect]
     Active Substance: SERTRALINE HYDROCHLORIDE
     Indication: WEIGHT DECREASED
     Dosage: INGESTED
     Route: 048
  11. AMORPHOPHALLUS KONJAC [Concomitant]
     Indication: WEIGHT DECREASED
     Dosage: UNKNOWN
     Route: 048
  12. GREEN MATE [Concomitant]
     Indication: WEIGHT DECREASED
     Dosage: UNKNOWN
     Route: 048
  13. ORLISTAT. [Suspect]
     Active Substance: ORLISTAT
     Indication: WEIGHT DECREASED
     Dosage: INGESTED
     Route: 048
  14. METFORMIN [Concomitant]
     Active Substance: METFORMIN HYDROCHLORIDE
     Indication: WEIGHT DECREASED
     Dosage: UNKNOWN
     Route: 048
  15. EQUISETUM ARVENSE [Suspect]
     Active Substance: EQUISETUM ARVENSE TOP
     Indication: WEIGHT DECREASED
     Dosage: INGESTED
     Route: 048
  16. CASSIA [Concomitant]
     Indication: WEIGHT DECREASED
     Dosage: UNKNOWN
     Route: 048

REACTIONS (2)
  - Liver injury [Recovering/Resolving]
  - Vanishing bile duct syndrome [Recovering/Resolving]
